FAERS Safety Report 9431889 (Version 3)
Quarter: 2014Q3

REPORT INFORMATION
  Report Type: Spontaneous
  Country: DK (occurrence: DK)
  Receive Date: 20130731
  Receipt Date: 20140902
  Transmission Date: 20150326
  Serious: Yes (Other)
  Sender: FDA-Public Use
  Company Number: PHHY2013DK080340

PATIENT
  Age: 58 Year
  Sex: Male

DRUGS (3)
  1. PAZOPANIB HYDROCHLORIDE [Concomitant]
     Active Substance: PAZOPANIB HYDROCHLORIDE
     Indication: RENAL CANCER
     Dosage: UNK UKN, UNK
     Dates: start: 2012
  2. ZOLEDRONATE [Suspect]
     Active Substance: ZOLEDRONIC ACID
     Indication: RENAL CANCER
     Dosage: 4 MG
     Route: 042
     Dates: start: 20101111, end: 20110921
  3. PREDNISOLON [Concomitant]
     Active Substance: PREDNISOLONE
     Dosage: UNK UKN, UNK
     Dates: start: 2010, end: 2012

REACTIONS (2)
  - Exposed bone in jaw [Unknown]
  - Osteonecrosis of jaw [Recovered/Resolved]

NARRATIVE: CASE EVENT DATE: 20111102
